FAERS Safety Report 23099988 (Version 1)
Quarter: 2023Q4

REPORT INFORMATION
  Report Type: Spontaneous
  Country: JP (occurrence: None)
  Receive Date: 20231024
  Receipt Date: 20231024
  Transmission Date: 20240110
  Serious: Yes (Hospitalization, Other)
  Sender: FDA-Public Use
  Company Number: JP-Orion Corporation ORION PHARMA-ENTC2023-0178

PATIENT
  Sex: Male

DRUGS (3)
  1. STALEVO [Suspect]
     Active Substance: CARBIDOPA\ENTACAPONE\LEVODOPA
     Indication: Parkinson^s disease
     Dosage: STRENGTH: LEVODOPA UNKNOWN;CARBIDOPA UNKNOWN;ENTACAPONE 100 MG, 7:00, 9:00, 11:00, 6QD
  2. STALEVO [Suspect]
     Active Substance: CARBIDOPA\ENTACAPONE\LEVODOPA
     Dosage: STRENGTH: LEVODOPA UNKNOWN;CARBIDOPA UNKNOWN;ENTACAPONE 100 MG, DID NOT TAKE AT 7:00 AND 9:00
  3. ZOLPIDEM TARTRATE [Concomitant]
     Active Substance: ZOLPIDEM TARTRATE

REACTIONS (6)
  - Wrong technique in product usage process [Unknown]
  - Depressed level of consciousness [Unknown]
  - Skin disorder [Unknown]
  - Pyrexia [Unknown]
  - Anxiety disorder [Unknown]
  - Product dose omission issue [Unknown]
